FAERS Safety Report 10636798 (Version 1)
Quarter: 2014Q4

REPORT INFORMATION
  Report Type: Spontaneous
  Country: FR (occurrence: None)
  Receive Date: 20141204
  Receipt Date: 20141204
  Transmission Date: 20150529
  Serious: Yes (Other)
  Sender: FDA-Public Use
  Company Number: ADR5-2014-02272

PATIENT
  Age: 44 Year
  Sex: Male

DRUGS (2)
  1. ALCOHOL (ETHANOL) [Suspect]
     Active Substance: ALCOHOL
  2. BACLOFEN (ORAL) [Suspect]
     Active Substance: BACLOFEN
     Indication: ALCOHOLISM
     Dates: start: 20110819

REACTIONS (5)
  - Condition aggravated [None]
  - Somnambulism [None]
  - Delirium [None]
  - Ankle fracture [None]
  - Adverse drug reaction [None]

NARRATIVE: CASE EVENT DATE: 20141010
